FAERS Safety Report 5431608-2 (Version None)
Quarter: 2007Q3

REPORT INFORMATION
  Report Type: 
  Country: None (occurrence: None)
  Receive Date: 20070830
  Receipt Date: 20070822
  Transmission Date: 20080115
  Serious: Yes (Hospitalization)
  Sender: FDA-Public Use
  Company Number: US-ELI_LILLY_AND_COMPANY-US200708004727

PATIENT
  Age: 59 Year
  Sex: Male

DRUGS (13)
  1. CYMBALTA [Suspect]
     Indication: NEURALGIA
     Dosage: 60 MG, UNK
  2. ATIVAN [Concomitant]
  3. DETROL                                  /USA/ [Concomitant]
  4. DURAGESIC-100 [Concomitant]
  5. FLOMAX [Concomitant]
  6. LOVASTATIN [Concomitant]
  7. PAMELOR [Concomitant]
  8. PROZAC [Suspect]
  9. RELAFEN [Concomitant]
  10. TRAZODONE HCL [Concomitant]
  11. VANCOMYCIN [Concomitant]
  12. ZANTAC 150 [Concomitant]
  13. BACLOFEN [Concomitant]

REACTIONS (1)
  - CEREBROVASCULAR ACCIDENT [None]
